FAERS Safety Report 8443797-6 (Version None)
Quarter: 2012Q2

REPORT INFORMATION
  Report Type: 
  Country: None (occurrence: None)
  Receive Date: 20120323
  Receipt Date: 20111007
  Transmission Date: 20120825
  Serious: Yes (Disabling)
  Sender: FDA-Public Use
  Company Number: 163-21880-11052723

PATIENT
  Age: 74 Year
  Sex: Male

DRUGS (2)
  1. REVLIMID [Suspect]
     Indication: MULTIPLE MYELOMA
     Dosage: 25 MG, EVERY DAY 1 14 DAYS, THEN 7 DAYS OFF, PO
     Route: 048
     Dates: start: 20110121
  2. REVLIMID [Suspect]
     Indication: MULTIPLE MYELOMA
     Dosage: 25 MG, EVERY DAY 1 14 DAYS, THEN 7 DAYS OFF, PO
     Route: 048
     Dates: start: 20110501, end: 20110517

REACTIONS (1)
  - NEUROPATHY PERIPHERAL [None]
